FAERS Safety Report 4618180-1 (Version None)
Quarter: 2005Q1

REPORT INFORMATION
  Report Type: 
  Country: None (occurrence: None)
  Receive Date: 20050323
  Receipt Date: 20050314
  Transmission Date: 20050727
  Serious: Yes (Hospitalization)
  Sender: FDA-Public Use
  Company Number: DE-2005-001445

PATIENT
  Age: 37 Year
  Sex: Female
  Weight: 106 kg

DRUGS (1)
  1. MIRENA [Suspect]
     Indication: DYSMENORRHOEA
     Dosage: 20UG/DAY, CONT, INTRA-UTERINE
     Route: 015
     Dates: start: 20030101

REACTIONS (1)
  - BREAST CANCER FEMALE [None]
